FAERS Safety Report 8263028-X (Version None)
Quarter: 2012Q2

REPORT INFORMATION
  Report Type: 
  Country: None (occurrence: None)
  Receive Date: 20120405
  Receipt Date: 20120330
  Transmission Date: 20120825
  Serious: Yes (Hospitalization)
  Sender: FDA-Public Use
  Company Number: US-B.I. PHARMACEUTICALS,INC./RIDGEFIELD-2012-BP-06054BP

PATIENT
  Age: 92 Year
  Sex: Male

DRUGS (3)
  1. PRADAXA [Suspect]
     Dosage: 150 MG
     Route: 048
     Dates: end: 20120101
  2. PRADAXA [Suspect]
     Dosage: 300 MG
     Route: 048
     Dates: start: 20120101
  3. PLAVIX [Concomitant]
     Route: 048

REACTIONS (3)
  - ENDOCARDITIS [None]
  - HAEMORRHAGE [None]
  - BACTERIAL SEPSIS [None]
